FAERS Safety Report 11243414 (Version 1)
Quarter: 2015Q3

REPORT INFORMATION
  Report Type: Spontaneous
  Country: US (occurrence: US)
  Receive Date: 20150707
  Receipt Date: 20150707
  Transmission Date: 20151125
  Serious: No
  Sender: FDA-Public Use
  Company Number: US-JNJFOC-20150620037

PATIENT
  Age: 82 Year
  Sex: Male
  Weight: 81.65 kg

DRUGS (5)
  1. FENTANYL TRANSDERMAL SYSTEM [Suspect]
     Active Substance: FENTANYL
     Indication: BONE CANCER
     Route: 062
     Dates: start: 201310
  2. FENTANYL TRANSDERMAL SYSTEM [Suspect]
     Active Substance: FENTANYL
     Indication: BONE CANCER
     Route: 062
     Dates: end: 20150621
  3. FENTANYL TRANSDERMAL SYSTEM [Suspect]
     Active Substance: FENTANYL
     Indication: BONE CANCER
     Route: 062
  4. FENTANYL TRANSDERMAL SYSTEM [Suspect]
     Active Substance: FENTANYL
     Indication: BONE CANCER
     Route: 062
     Dates: start: 20150622
  5. FENTANYL TRANSDERMAL SYSTEM [Suspect]
     Active Substance: FENTANYL
     Indication: BONE CANCER
     Route: 062

REACTIONS (5)
  - Drug administered at inappropriate site [Unknown]
  - Pain in extremity [Unknown]
  - Drug ineffective [Unknown]
  - Product quality issue [Unknown]
  - Product quality issue [Unknown]

NARRATIVE: CASE EVENT DATE: 201506
